FAERS Safety Report 21268665 (Version 1)
Quarter: 2022Q3

REPORT INFORMATION
  Report Type: Report from Study
  Country: US (occurrence: US)
  Receive Date: 20220830
  Receipt Date: 20220830
  Transmission Date: 20221027
  Serious: Yes (Other)
  Sender: FDA-Public Use
  Company Number: US-KADMON-US-KAD-22-00780

PATIENT
  Sex: Male

DRUGS (1)
  1. BELUMOSUDIL [Suspect]
     Active Substance: BELUMOSUDIL
     Indication: Product used for unknown indication
     Dosage: 200 MILLIGRAM, UNK
     Route: 065
     Dates: start: 20220720

REACTIONS (8)
  - Haematocrit abnormal [Unknown]
  - Haemoglobin abnormal [Unknown]
  - Retching [Unknown]
  - Dizziness [Unknown]
  - Decreased appetite [Unknown]
  - Nausea [Unknown]
  - Pruritus [Unknown]
  - Product dose omission issue [Unknown]
